FAERS Safety Report 9230313 (Version 1)
Quarter: 2013Q2

REPORT INFORMATION
  Report Type: Spontaneous
  Country: AR (occurrence: AR)
  Receive Date: 20130415
  Receipt Date: 20130415
  Transmission Date: 20140414
  Serious: Yes (Other)
  Sender: FDA-Public Use
  Company Number: PHHY2013AR035611

PATIENT
  Sex: Female

DRUGS (2)
  1. EXFORGE [Suspect]
     Indication: HYPERTENSION
     Dosage: 1 DF (160/5 MG), DAILY
     Route: 048
     Dates: start: 2011
  2. CARVEDILOL [Concomitant]
     Dosage: 50 MG, DAILY
     Dates: start: 2011

REACTIONS (4)
  - Peripheral nerve lesion [Unknown]
  - Back pain [Unknown]
  - Haematoma [Unknown]
  - Hypokinesia [Unknown]
